FAERS Safety Report 23943414 (Version 1)
Quarter: 2024Q2

REPORT INFORMATION
  Report Type: Report from Study
  Country: SA (occurrence: SA)
  Receive Date: 20240605
  Receipt Date: 20240605
  Transmission Date: 20240716
  Serious: Yes (Hospitalization)
  Sender: FDA-Public Use
  Company Number: SA-BIOGEN-2024BI01267615

PATIENT
  Sex: Female

DRUGS (1)
  1. SPINRAZA [Suspect]
     Active Substance: NUSINERSEN
     Indication: Spinal muscular atrophy
     Dosage: LOADING DOSES (0, 14, 28, 63) THEN 1 MAINTENANCE DOSE EVERY 4 MONTHS
     Route: 050
     Dates: start: 20220901

REACTIONS (1)
  - Dyspnoea [Recovered/Resolved]
